FAERS Safety Report 10264971 (Version 1)
Quarter: 2014Q2

REPORT INFORMATION
  Report Type: Spontaneous
  Country: FR (occurrence: FR)
  Receive Date: 20140627
  Receipt Date: 20140627
  Transmission Date: 20141212
  Serious: Yes (Hospitalization)
  Sender: FDA-Public Use
  Company Number: FR-PFIZER INC-2014172699

PATIENT
  Age: 36 Year
  Sex: Female

DRUGS (6)
  1. SYNAREL [Suspect]
     Indication: IN VITRO FERTILISATION
     Dosage: UNK 0.2MG/DOSE
     Route: 045
     Dates: start: 20140225, end: 20140325
  2. PUREGON [Suspect]
     Indication: IN VITRO FERTILISATION
     Dosage: 200 IU, UNK
     Route: 058
     Dates: start: 20140315, end: 20140323
  3. PUREGON [Suspect]
     Dosage: 150 IU, UNK
     Route: 058
     Dates: start: 20140324, end: 20140324
  4. PUREGON [Suspect]
     Dosage: 125 IU, UNK
     Route: 058
     Dates: start: 20140325, end: 20140325
  5. OVITRELLE [Suspect]
     Indication: IN VITRO FERTILISATION
     Dosage: UNK
     Route: 058
     Dates: start: 20140326, end: 20140326
  6. PROGESTAN [Concomitant]
     Dosage: UNK
     Dates: start: 20140331

REACTIONS (1)
  - Ovarian hyperstimulation syndrome [Recovered/Resolved]
